FAERS Safety Report 22177044 (Version 1)
Quarter: 2023Q2

REPORT INFORMATION
  Report Type: Spontaneous
  Country: JP (occurrence: None)
  Receive Date: 20230405
  Receipt Date: 20230405
  Transmission Date: 20230722
  Serious: Yes (Hospitalization)
  Sender: FDA-Public Use
  Company Number: 2023A071448

PATIENT
  Age: 87 Year
  Sex: Female

DRUGS (2)
  1. DAPAGLIFLOZIN [Suspect]
     Active Substance: DAPAGLIFLOZIN
     Indication: Cardiac failure chronic
     Dosage: DOSE UNKNOWN
     Route: 048
     Dates: start: 20230315
  2. UNSPECIFIED INGREDIENT [Concomitant]
     Active Substance: UNSPECIFIED INGREDIENT
     Dosage: DOSE UNKNOWN

REACTIONS (6)
  - Pleural effusion [Recovered/Resolved]
  - Blood sodium decreased [Recovered/Resolved]
  - Amylase increased [Recovered/Resolved]
  - Dehydration [Unknown]
  - Hepatic function abnormal [Unknown]
  - Dementia [Unknown]

NARRATIVE: CASE EVENT DATE: 20230318
